FAERS Safety Report 18390066 (Version 2)
Quarter: 2020Q4

REPORT INFORMATION
  Report Type: Spontaneous
  Country: US (occurrence: US)
  Receive Date: 20201016
  Receipt Date: 20201027
  Transmission Date: 20210114
  Serious: Yes (Hospitalization)
  Sender: FDA-Public Use
  Company Number: US-ROCHE-2696230

PATIENT
  Age: 55 Year
  Sex: Female

DRUGS (7)
  1. ACTEMRA [Suspect]
     Active Substance: TOCILIZUMAB
  2. MORTIN [Concomitant]
     Active Substance: SULFAMETHOXAZOLE\TRIMETHOPRIM
  3. NOVOLIN R [Concomitant]
     Active Substance: INSULIN HUMAN
  4. GABAPENTIN. [Concomitant]
     Active Substance: GABAPENTIN
  5. ACTEMRA [Suspect]
     Active Substance: TOCILIZUMAB
     Indication: RHEUMATOID ARTHRITIS
     Dosage: 162MG/0.9ML, 1 PEN
     Route: 058
     Dates: start: 20200916
  6. LISINOPRIL. [Concomitant]
     Active Substance: LISINOPRIL
  7. NOVOLIN N [Concomitant]
     Active Substance: INSULIN HUMAN

REACTIONS (6)
  - Nausea [Unknown]
  - Vomiting [Unknown]
  - Diarrhoea [Unknown]
  - Ill-defined disorder [Unknown]
  - Chills [Unknown]
  - Cough [Unknown]

NARRATIVE: CASE EVENT DATE: 20201011
